FAERS Safety Report 13387611 (Version 6)
Quarter: 2018Q3

REPORT INFORMATION
  Report Type: Report from Study
  Country: DE (occurrence: DE)
  Receive Date: 20170330
  Receipt Date: 20180731
  Transmission Date: 20181010
  Serious: Yes (Death, Life-Threatening)
  Sender: FDA-Public Use
  Company Number: PHHY2017DE047097

PATIENT
  Sex: Female
  Weight: 71 kg

DRUGS (3)
  1. VOTRIENT [Suspect]
     Active Substance: PAZOPANIB HYDROCHLORIDE
     Indication: METASTATIC RENAL CELL CARCINOMA
     Dosage: 400 MG, QD
     Route: 048
     Dates: start: 20170302, end: 20170314
  2. ONDANSETRON B BRAUN [Concomitant]
     Indication: PROPHYLAXIS
     Dosage: 8 MG, PRN (STOPPED DATE: 22?MAR?2017)
     Route: 048
     Dates: start: 20170316
  3. VOTRIENT [Suspect]
     Active Substance: PAZOPANIB HYDROCHLORIDE
     Dosage: 800 MG, QD (STOPPED DATE: 22?MAR?2017)
     Route: 048
     Dates: start: 20170315

REACTIONS (3)
  - Death [Fatal]
  - Constipation [Unknown]
  - Nausea [Unknown]

NARRATIVE: CASE EVENT DATE: 20170322
